FAERS Safety Report 5617242-X (Version None)
Quarter: 2008Q1

REPORT INFORMATION
  Report Type: 
  Country: None (occurrence: None)
  Receive Date: 20080114
  Receipt Date: 20070426
  Transmission Date: 20080703
  Serious: Yes (Hospitalization)
  Sender: FDA-Public Use
  Company Number: A03200702746

PATIENT
  Age: 78 Year
  Sex: Female

DRUGS (3)
  1. PLAVIX [Suspect]
     Indication: STENT PLACEMENT
     Dosage: ORAL
     Route: 048
  2. CARVEDILOL [Concomitant]
  3. ACETYLSALICYLIC ACID SRT [Concomitant]

REACTIONS (1)
  - POST PROCEDURAL HAEMORRHAGE [None]
